FAERS Safety Report 5107312-7 (Version None)
Quarter: 2006Q3

REPORT INFORMATION
  Report Type: 
  Country: None (occurrence: None)
  Receive Date: 20060912
  Receipt Date: 20060907
  Transmission Date: 20061208
  Serious: Yes (Other)
  Sender: FDA-Public Use
  Company Number: HQWYE828122AUG06

PATIENT
  Age: 23 Year
  Sex: Female

DRUGS (1)
  1. AMIODARONE HCL [Suspect]
     Dosage: 150 MG 1X PER 1 DAY
     Route: 042
     Dates: end: 20060723

REACTIONS (5)
  - ANAPHYLACTIC SHOCK [None]
  - DERMATITIS ALLERGIC [None]
  - HYPERSENSITIVITY [None]
  - INFUSION RELATED REACTION [None]
  - SKIN REACTION [None]
